FAERS Safety Report 11695809 (Version 11)
Quarter: 2017Q2

REPORT INFORMATION
  Report Type: Spontaneous
  Country: US (occurrence: US)
  Receive Date: 20151104
  Receipt Date: 20170525
  Transmission Date: 20170829
  Serious: Yes (Congenital Anomaly, Other)
  Sender: FDA-Public Use
  Company Number: PHEH2015US022339

PATIENT
  Sex: Female

DRUGS (3)
  1. ONDANSETRONE RANBAXY [Suspect]
     Active Substance: ONDANSETRON HYDROCHLORIDE
     Indication: FOETAL EXPOSURE DURING PREGNANCY
     Dosage: MOTHER^S  DOSE: 08 MG, UNK
     Route: 064
  2. ZOFRAN [Suspect]
     Active Substance: ONDANSETRON HYDROCHLORIDE
     Indication: FOETAL EXPOSURE DURING PREGNANCY
     Dosage: MOTHER^S DOSE: 1 DF, BID
     Route: 064
  3. ONDANSETRON [Suspect]
     Active Substance: ONDANSETRON
     Indication: FOETAL EXPOSURE DURING PREGNANCY
     Route: 064

REACTIONS (43)
  - Ventricular septal defect [Unknown]
  - DiGeorge^s syndrome [Unknown]
  - Pleural effusion [Unknown]
  - Emotional distress [Unknown]
  - Scar [Unknown]
  - Lymphopenia [Unknown]
  - Multiple congenital abnormalities [Unknown]
  - Pulmonary valve stenosis congenital [Unknown]
  - Right ventricle outflow tract obstruction [Unknown]
  - Foetal exposure during pregnancy [Unknown]
  - Hyperdynamic left ventricle [Unknown]
  - Anhedonia [Unknown]
  - Strabismus [Unknown]
  - Otitis media [Unknown]
  - Bicuspid aortic valve [Unknown]
  - Spina bifida [Unknown]
  - Congenital pulmonary valve atresia [Unknown]
  - Right ventricular hypertension [Unknown]
  - Atrioventricular block complete [Unknown]
  - Cardiac hypertrophy [Unknown]
  - Rhinorrhoea [Unknown]
  - Heart disease congenital [Unknown]
  - Fallot^s tetralogy [Unknown]
  - Hypoxia [Unknown]
  - Hypervolaemia [Unknown]
  - Cyanosis neonatal [Unknown]
  - Cardiac failure acute [Unknown]
  - Hyperhidrosis [Unknown]
  - Congenital anomaly [Unknown]
  - Pulmonary valve incompetence [Unknown]
  - Anaemia neonatal [Unknown]
  - Anxiety [Unknown]
  - Right ventricular hypertrophy [Unknown]
  - Congenital arterial malformation [Unknown]
  - Neonatal hyponatraemia [Unknown]
  - Atrioventricular block first degree [Unknown]
  - Injury [Unknown]
  - Dyspnoea [Unknown]
  - Atrial septal defect [Unknown]
  - Left-to-right cardiac shunt [Unknown]
  - Dysmorphism [Unknown]
  - Acute respiratory failure [Unknown]
  - Pain [Unknown]
